FAERS Safety Report 9305109 (Version 4)
Quarter: 2013Q4

REPORT INFORMATION
  Report Type: Spontaneous
  Country: MX (occurrence: None)
  Receive Date: 20130201
  Receipt Date: 20131126
  Transmission Date: 20140711
  Serious: Yes (Other)
  Sender: FDA-Public Use
  Company Number: ENTC2012-0556

PATIENT
  Age: 43 Year
  Sex: Female

DRUGS (6)
  1. STALEVO [Suspect]
     Indication: PARKINSON^S DISEASE
     Dosage: 2 TABLETS (50/12.5/200 MG)0.5DF 4 IN 1D.
     Route: 048
     Dates: start: 20111110
  2. LEVODOPA-CARBIDOPA [Concomitant]
  3. PLANTIVAL NOVO [Concomitant]
  4. PRODOLINA [Concomitant]
  5. GLUCOSAMINE [Concomitant]
  6. DICLOFENAC [Concomitant]

REACTIONS (26)
  - Fatigue [None]
  - Abdominal discomfort [None]
  - Chest pain [None]
  - Anxiety [None]
  - Crying [None]
  - Depression [None]
  - Arthralgia [None]
  - Tremor [None]
  - Pain in extremity [None]
  - Family stress [None]
  - Death of relative [None]
  - Wrong technique in drug usage process [None]
  - Dizziness [None]
  - Pain in extremity [None]
  - Urinary tract infection [None]
  - Hypotension [None]
  - Overweight [None]
  - Memory impairment [None]
  - Blindness [None]
  - Gait disturbance [None]
  - Medication error [None]
  - Blood triglycerides increased [None]
  - Pain [None]
  - Muscle rigidity [None]
  - Stress [None]
  - Anger [None]
